FAERS Safety Report 7586843-4 (Version None)
Quarter: 2011Q2

REPORT INFORMATION
  Report Type: 
  Country: None (occurrence: None)
  Receive Date: 20110603
  Receipt Date: 20110228
  Transmission Date: 20111010
  Serious: Yes (Other)
  Sender: FDA-Public Use
  Company Number: 2011SP009294

PATIENT
  Age: 50 Year
  Sex: Female

DRUGS (2)
  1. SAPHRIS [Suspect]
     Indication: SCHIZOAFFECTIVE DISORDER
     Dosage: 5 MG ; 10 MG;BID;SL
     Route: 060
     Dates: start: 20110101
  2. SAPHRIS [Suspect]
     Indication: SCHIZOAFFECTIVE DISORDER
     Dosage: 5 MG ; 10 MG;BID;SL
     Route: 060
     Dates: start: 20110209, end: 20110215

REACTIONS (2)
  - MYALGIA [None]
  - SWOLLEN TONGUE [None]
